FAERS Safety Report 6907419-5 (Version None)
Quarter: 2010Q3

REPORT INFORMATION
  Report Type: 
  Country: None (occurrence: None)
  Receive Date: 20100802
  Receipt Date: 20100721
  Transmission Date: 20110219
  Serious: Yes (Life-Threatening)
  Sender: FDA-Public Use
  Company Number: 7011979

PATIENT
  Sex: Female

DRUGS (3)
  1. REBIF [Suspect]
     Indication: MULTIPLE SCLEROSIS
     Dosage: 44 MCG, 3 IN 1 WK; 44 MCG, 2 IN 1 WK
     Dates: start: 20070813
  2. REBIF [Suspect]
     Indication: MULTIPLE SCLEROSIS
     Dosage: 44 MCG, 3 IN 1 WK; 44 MCG, 2 IN 1 WK
     Dates: start: 20100101
  3. ACETAMINOPHEN [Concomitant]

REACTIONS (3)
  - HEPATIC ENZYME INCREASED [None]
  - PAIN IN EXTREMITY [None]
  - SUICIDAL IDEATION [None]
